FAERS Safety Report 18514954 (Version 2)
Quarter: 2021Q4

REPORT INFORMATION
  Report Type: Spontaneous
  Country: US (occurrence: US)
  Receive Date: 20201118
  Receipt Date: 20211129
  Transmission Date: 20220303
  Serious: No
  Sender: FDA-Public Use
  Company Number: US-UCBSA-2020021180

PATIENT
  Age: 14 Year
  Sex: Male

DRUGS (3)
  1. VIMPAT [Suspect]
     Active Substance: LACOSAMIDE
     Indication: Seizure
     Dosage: 2.5 MILLILITER, 2X/DAY (BID)
     Route: 048
     Dates: start: 20200514, end: 20200520
  2. VIMPAT [Suspect]
     Active Substance: LACOSAMIDE
     Dosage: 5 MILLILITER, 2X/DAY (BID)
  3. LAMICTAL [Concomitant]
     Active Substance: LAMOTRIGINE
     Indication: Seizure
     Dosage: 200 MILLIGRAM, 2X/DAY (BID)

REACTIONS (3)
  - Somnolence [Not Recovered/Not Resolved]
  - Vomiting [Recovered/Resolved]
  - Mood swings [Not Recovered/Not Resolved]

NARRATIVE: CASE EVENT DATE: 20200515
